FAERS Safety Report 17289865 (Version 1)
Quarter: 2020Q1

REPORT INFORMATION
  Report Type: Report from Study
  Country: IT (occurrence: IT)
  Receive Date: 20200120
  Receipt Date: 20200120
  Transmission Date: 20200409
  Serious: Yes (Other)
  Sender: FDA-Public Use
  Company Number: IT-MYLANLABS-2020M1004743

PATIENT
  Age: 97 Year
  Sex: Male

DRUGS (1)
  1. CITALOPRAM [Suspect]
     Active Substance: CITALOPRAM HYDROBROMIDE
     Indication: PRODUCT USED FOR UNKNOWN INDICATION
     Dosage: UNK
     Dates: start: 20190902, end: 20190902

REACTIONS (3)
  - Sopor [Recovering/Resolving]
  - Depressed level of consciousness [Recovering/Resolving]
  - Decreased activity [Recovering/Resolving]

NARRATIVE: CASE EVENT DATE: 20190902
